FAERS Safety Report 7635355-8 (Version None)
Quarter: 2011Q3

REPORT INFORMATION
  Report Type: 
  Country: None (occurrence: None)
  Receive Date: 20110726
  Receipt Date: 20100809
  Transmission Date: 20111222
  Serious: No
  Sender: FDA-Public Use
  Company Number: US-GLAXOSMITHKLINE-A0875037A

PATIENT
  Age: 82 Year
  Sex: Female

DRUGS (2)
  1. EXTINA [Suspect]
     Indication: PRURITUS
     Route: 065
     Dates: start: 20100701
  2. VECTICAL [Suspect]
     Indication: PRURITUS
     Route: 061
     Dates: start: 20100701

REACTIONS (3)
  - BURNING SENSATION [None]
  - HAIR DISORDER [None]
  - PRURITUS [None]
